FAERS Safety Report 8735309 (Version 4)
Quarter: 2013Q2

REPORT INFORMATION
  Report Type: Report from Study
  Country: JP (occurrence: JP)
  Receive Date: 20120822
  Receipt Date: 20130416
  Transmission Date: 20140414
  Serious: Yes (Hospitalization, Other)
  Sender: FDA-Public Use
  Company Number: JP-009507513-1208JPN005072

PATIENT
  Age: 61 Year
  Sex: Female
  Weight: 66 kg

DRUGS (14)
  1. PEGINTRON [Suspect]
     Indication: CHRONIC HEPATITIS C
     Dosage: 1.36 MICROGRAM PER KILOGRAM, QW
     Route: 058
     Dates: start: 20120327, end: 20120529
  2. REBETOL [Suspect]
     Indication: CHRONIC HEPATITIS C
     Dosage: 600 MG, QD
     Route: 048
     Dates: start: 20120327, end: 20120528
  3. TELAVIC [Suspect]
     Indication: CHRONIC HEPATITIS C
     Dosage: 2250MG, QD
     Route: 048
     Dates: start: 20120327, end: 20120521
  4. PARIET [Concomitant]
     Indication: GASTROOESOPHAGEAL REFLUX DISEASE
     Dosage: 10 MG, QD
     Route: 048
  5. ACTOS [Concomitant]
     Indication: DIABETES MELLITUS
     Dosage: 15 MG, QD
     Route: 048
  6. AMLODIN (AMLODIPINE BESYLATE) [Concomitant]
     Indication: HYPERTENSION
     Dosage: 5 MG, QD
     Route: 048
  7. AMARYL [Concomitant]
     Indication: DIABETES MELLITUS
     Dosage: 0.5 MG, QD
     Route: 048
  8. NO. 4 A ANTIPYRETIC ANALGESIC [Concomitant]
     Indication: RENAL IMPAIRMENT
     Dosage: 500ML, QD
     Route: 051
     Dates: start: 20120330, end: 20120522
  9. VITAMEDIN [Concomitant]
     Indication: METABOLIC DISORDER
     Dosage: 1 DF, QD
     Route: 051
     Dates: start: 20120330, end: 20120602
  10. PREDONINE [Concomitant]
     Indication: RASH
     Dosage: 30 MG, QD
     Route: 048
     Dates: start: 20120402, end: 20120601
  11. GASTER D [Concomitant]
     Dosage: 40 MG, QD
     Route: 048
     Dates: start: 20120418, end: 20120602
  12. BFLUID [Concomitant]
     Indication: MEDICAL DIET
     Dosage: 500 ML, QD
     Route: 051
     Dates: start: 20120523, end: 20120601
  13. MALFA [Concomitant]
     Indication: GASTRITIS
     Dosage: 30 ML, QD
     Route: 048
     Dates: start: 20120528, end: 20120601
  14. NAIXAN [Concomitant]
     Indication: PROPHYLAXIS
     Dosage: 100 MG, QD AS NEEDED
     Route: 048
     Dates: start: 20120327, end: 20120424

REACTIONS (10)
  - Renal impairment [Recovering/Resolving]
  - Decreased appetite [Recovered/Resolved]
  - Renal impairment [Recovering/Resolving]
  - Hyperuricaemia [Recovered/Resolved]
  - Hyperuricaemia [Recovered/Resolved]
  - Erythema multiforme [Recovered/Resolved]
  - Dysgeusia [Not Recovered/Not Resolved]
  - Dysgeusia [Recovered/Resolved]
  - Anaemia [Recovered/Resolved]
  - Malnutrition [Not Recovered/Not Resolved]
